FAERS Safety Report 23736205 (Version 2)
Quarter: 2024Q2

REPORT INFORMATION
  Report Type: Report from Study
  Country: US (occurrence: US)
  Receive Date: 20240412
  Receipt Date: 20240419
  Transmission Date: 20240716
  Serious: Yes (Hospitalization)
  Sender: FDA-Public Use
  Company Number: US-BAYER-2024A042780

PATIENT
  Age: 85 Year
  Sex: Male
  Weight: 73.469 kg

DRUGS (20)
  1. ADEMPAS [Suspect]
     Active Substance: RIOCIGUAT
     Indication: Pulmonary arterial hypertension
     Dosage: UNK
     Dates: start: 20230301
  2. ADEMPAS [Suspect]
     Active Substance: RIOCIGUAT
     Indication: Pulmonary arterial hypertension
     Dosage: 2.5 MG, TID
     Route: 048
  3. ADEMPAS [Suspect]
     Active Substance: RIOCIGUAT
     Indication: Pulmonary arterial hypertension
     Dosage: 2.5 MG, TID
     Route: 048
  4. PENTOXIFYLLINE [Concomitant]
     Active Substance: PENTOXIFYLLINE
  5. MIRALAX [Concomitant]
     Active Substance: POLYETHYLENE GLYCOL 3350
  6. TAMSULOSIN HYDROCHLORIDE [Concomitant]
     Active Substance: TAMSULOSIN HYDROCHLORIDE
  7. ALBUTEROL SULFATE [Concomitant]
     Active Substance: ALBUTEROL SULFATE
  8. ALLOPURINOL [Concomitant]
     Active Substance: ALLOPURINOL
  9. FINASTERIDE [Concomitant]
     Active Substance: FINASTERIDE
  10. CALCITRIOL [Concomitant]
     Active Substance: CALCITRIOL
  11. FOLIC ACID [Concomitant]
     Active Substance: FOLIC ACID
  12. BUMETANIDE [Concomitant]
     Active Substance: BUMETANIDE
  13. ASPIRIN [Concomitant]
     Active Substance: ASPIRIN
  14. PREDNISONE [Concomitant]
     Active Substance: PREDNISONE
  15. SIMVASTATIN [Concomitant]
     Active Substance: SIMVASTATIN
  16. CALCIUM CARBONATE [Concomitant]
     Active Substance: CALCIUM CARBONATE
  17. MIDODRINE [Concomitant]
     Active Substance: MIDODRINE
  18. OMEPRAZOLE [Concomitant]
     Active Substance: OMEPRAZOLE
  19. TYVASO [Concomitant]
     Active Substance: TREPROSTINIL
  20. HYDRALAZINE [Concomitant]
     Active Substance: HYDRALAZINE HYDROCHLORIDE

REACTIONS (1)
  - Hypervolaemia [None]

NARRATIVE: CASE EVENT DATE: 20240314
